FAERS Safety Report 9120039 (Version 1)
Quarter: 2013Q1

REPORT INFORMATION
  Report Type: Spontaneous
  Country: US (occurrence: US)
  Receive Date: 20130226
  Receipt Date: 20130226
  Transmission Date: 20140127
  Serious: Yes (Other)
  Sender: FDA-Public Use
  Company Number: US-BAYER-2013-022022

PATIENT
  Age: 73 Year
  Sex: Female
  Weight: 75.74 kg

DRUGS (7)
  1. BAYER GENUINE ASPIRIN ORIGINAL STRENGTH [Suspect]
     Dosage: 1-2 UNITS
     Route: 048
  2. AMIODARONE [Concomitant]
  3. FUROSEMIDE [Concomitant]
  4. POTASSIUM [Concomitant]
  5. TUBERSOL [Concomitant]
  6. ERGOCALCIFEROL [Concomitant]
  7. METOPROLOL [Concomitant]

REACTIONS (2)
  - Cardiac valve disease [Recovered/Resolved]
  - Off label use [None]
